FAERS Safety Report 8189607-6 (Version None)
Quarter: 2012Q1

REPORT INFORMATION
  Report Type: 
  Country: None (occurrence: None)
  Receive Date: 20120307
  Receipt Date: 20120229
  Transmission Date: 20120608
  Serious: Yes (Life-Threatening, Other)
  Sender: FDA-Public Use
  Company Number: MX-BRISTOL-MYERS SQUIBB COMPANY-16429425

PATIENT
  Age: 73 Year
  Sex: Female

DRUGS (1)
  1. IRBESARTAN AND HYDROCHLOROTHIAZIDE [Suspect]
     Indication: HYPERTENSION
     Dosage: FREQUENCY CHANGED FROM 1TAB/24HRS TO 1TAB/12HRS.START DT (2007-20FEB2012,20FEB2012-ONGNG)
     Route: 048
     Dates: start: 20070101

REACTIONS (3)
  - HYPERTENSIVE CRISIS [None]
  - OEDEMA PERIPHERAL [None]
  - OVERDOSE [None]
